FAERS Safety Report 12978428 (Version 1)
Quarter: 2016Q4

REPORT INFORMATION
  Report Type: Spontaneous
  Country: US (occurrence: US)
  Receive Date: 20161123
  Receipt Date: 20161123
  Transmission Date: 20170207
  Serious: No
  Sender: FDA-Public Use
  Company Number: None

PATIENT
  Age: 68 Year
  Sex: Male
  Weight: 106.9 kg

DRUGS (1)
  1. PHYTONADIONE. [Suspect]
     Active Substance: PHYTONADIONE
     Indication: INTERNATIONAL NORMALISED RATIO INCREASED
     Route: 042
     Dates: start: 20161012, end: 20161012

REACTIONS (12)
  - Tachycardia [None]
  - Chills [None]
  - Secretion discharge [None]
  - Mental status changes [None]
  - Pyrexia [None]
  - Abdominal wound dehiscence [None]
  - Pruritus generalised [None]
  - Dyspnoea [None]
  - Subcutaneous haematoma [None]
  - Abdominal abscess [None]
  - Abdominal pain [None]
  - Hypertension [None]

NARRATIVE: CASE EVENT DATE: 20161012
